FAERS Safety Report 13740466 (Version 1)
Quarter: 2017Q3

REPORT INFORMATION
  Report Type: Spontaneous
  Country: US (occurrence: US)
  Receive Date: 20170710
  Receipt Date: 20170710
  Transmission Date: 20171127
  Serious: No
  Sender: FDA-Public Use
  Company Number: None

PATIENT
  Age: 86 Year
  Sex: Male
  Weight: 79.2 kg

DRUGS (1)
  1. RITUXAN [Suspect]
     Active Substance: RITUXIMAB
     Indication: CHRONIC LYMPHOCYTIC LEUKAEMIA
     Dosage: ?          OTHER DOSE:MG;OTHER FREQUENCY:Q WEEK;?
     Route: 041
     Dates: start: 20170511, end: 20170522

REACTIONS (2)
  - Chills [None]
  - Pain [None]

NARRATIVE: CASE EVENT DATE: 20170522
